FAERS Safety Report 6545267-9 (Version None)
Quarter: 2010Q1

REPORT INFORMATION
  Report Type: 
  Country: None (occurrence: None)
  Receive Date: 20100121
  Receipt Date: 20091123
  Transmission Date: 20100710
  Serious: No
  Sender: FDA-Public Use
  Company Number: US-KINGPHARMUSA00001-K200901467

PATIENT
  Sex: Female
  Weight: 58.957 kg

DRUGS (3)
  1. EPIPEN [Suspect]
     Indication: URTICARIA
     Dosage: 0.3 MG, SINGLE
     Dates: start: 20091113, end: 20091113
  2. CYMBALTA [Concomitant]
     Indication: NEUROPATHY PERIPHERAL
     Dosage: 50 MG, QD
     Route: 048
  3. CYMBALTA [Concomitant]
     Indication: DEPRESSION

REACTIONS (4)
  - ACCIDENTAL EXPOSURE [None]
  - INJECTION SITE INDURATION [None]
  - INJECTION SITE PAIN [None]
  - NERVOUSNESS [None]
